FAERS Safety Report 4950094-X (Version None)
Quarter: 2006Q1

REPORT INFORMATION
  Report Type: 
  Country: None (occurrence: None)
  Receive Date: 20060320
  Receipt Date: 20060320
  Transmission Date: 20060701
  Serious: Yes (Hospitalization)
  Sender: FDA-Public Use
  Company Number: None

PATIENT

DRUGS (1)
  1. DEPODUR [Suspect]
     Indication: SURGERY

REACTIONS (3)
  - NAUSEA [None]
  - PRURITUS [None]
  - RASH [None]
